FAERS Safety Report 23522043 (Version 8)
Quarter: 2024Q3

REPORT INFORMATION
  Report Type: Spontaneous
  Country: US (occurrence: US)
  Receive Date: 20240214
  Receipt Date: 20240919
  Transmission Date: 20241017
  Serious: Yes (Other)
  Sender: NOVARTIS
  Company Number: US-002147023-NVSC2024US031021

PATIENT
  Sex: Female

DRUGS (1)
  1. COSENTYX [Suspect]
     Active Substance: SECUKINUMAB
     Indication: Product used for unknown indication
     Dosage: 300 MG, QW (2X 150MG)
     Route: 050

REACTIONS (5)
  - Thrombosis [Unknown]
  - Needle issue [Unknown]
  - Device failure [Unknown]
  - Drug dose omission by device [Unknown]
  - Device delivery system issue [Unknown]
